FAERS Safety Report 21487637 (Version 1)
Quarter: 2022Q4

REPORT INFORMATION
  Report Type: Spontaneous
  Country: DE (occurrence: DE)
  Receive Date: 20221020
  Receipt Date: 20221020
  Transmission Date: 20230113
  Serious: Yes (Other)
  Sender: FDA-Public Use
  Company Number: DE-MYLANLABS-2022M1113926

PATIENT
  Age: 52 Year
  Sex: Female

DRUGS (1)
  1. GLATIRAMER [Suspect]
     Active Substance: GLATIRAMER
     Indication: Product used for unknown indication
     Dosage: UNK
     Route: 065
     Dates: start: 2012

REACTIONS (10)
  - Multiple sclerosis relapse [Recovered/Resolved]
  - Abdominal pain upper [Unknown]
  - Vomiting [Recovered/Resolved]
  - Nausea [Unknown]
  - Pyrexia [Unknown]
  - Anxiety [Recovering/Resolving]
  - Weight increased [Recovering/Resolving]
  - Adverse event [Recovered/Resolved]
  - Blood glucose decreased [Recovered/Resolved]
  - Blood glucose normal [Recovered/Resolved]

NARRATIVE: CASE EVENT DATE: 20210101
